FAERS Safety Report 6453782-1 (Version None)
Quarter: 2009Q4

REPORT INFORMATION
  Report Type: 
  Country: None (occurrence: None)
  Receive Date: 20091123
  Receipt Date: 20091123
  Transmission Date: 20100525
  Serious: Yes (Hospitalization, Other)
  Sender: FDA-Public Use
  Company Number: None

PATIENT
  Sex: Male
  Weight: 65.7716 kg

DRUGS (16)
  1. VYTORIN [Suspect]
     Dosage: PO
     Route: 048
  2. COREG [Concomitant]
  3. SINGULAIR [Concomitant]
  4. PLAVIX [Concomitant]
  5. ALDACTONE [Concomitant]
  6. DIGOXIN [Concomitant]
  7. PAXIL [Concomitant]
  8. TORSEMIDEKLOR-CONM20 [Concomitant]
  9. LORAZEPAM RESTORIL [Concomitant]
  10. COUMADIN [Concomitant]
  11. ASPIRIN [Concomitant]
  12. FOLIC ACID [Concomitant]
  13. MAGNESIUM [Concomitant]
  14. PULMICORT [Concomitant]
  15. IPRATROPIUM BROMIDE [Concomitant]
  16. ALBUTEROL SULFATE AUTOHALER [Concomitant]

REACTIONS (7)
  - CARDIAC FAILURE CONGESTIVE [None]
  - FAECALOMA [None]
  - FALL [None]
  - GAIT DISTURBANCE [None]
  - MUSCULAR WEAKNESS [None]
  - PNEUMONIA [None]
  - RHABDOMYOLYSIS [None]
